FAERS Safety Report 23822968 (Version 1)
Quarter: 2024Q2

REPORT INFORMATION
  Report Type: Spontaneous
  Country: CN (occurrence: CN)
  Receive Date: 20240506
  Receipt Date: 20240506
  Transmission Date: 20240716
  Serious: Yes (Other)
  Sender: FDA-Public Use
  Company Number: CN-BEIGENE-BGN-2024-006648

PATIENT

DRUGS (3)
  1. TISLELIZUMAB [Suspect]
     Active Substance: TISLELIZUMAB
     Indication: Adenosquamous carcinoma of the cervix
     Dosage: 200 MILLIGRAM
     Route: 041
     Dates: start: 20240412
  2. CISPLATIN [Suspect]
     Active Substance: CISPLATIN
     Indication: Adenosquamous carcinoma of the cervix
     Dosage: 38 MILLIGRAM
     Route: 041
     Dates: start: 20240412
  3. PACLITAXEL [Suspect]
     Active Substance: PACLITAXEL
     Indication: Adenosquamous carcinoma of the cervix
     Dosage: 380 MILLIGRAM
     Route: 041
     Dates: start: 20240412

REACTIONS (2)
  - White blood cell count decreased [Recovered/Resolved]
  - Neutrophil count decreased [Recovered/Resolved]

NARRATIVE: CASE EVENT DATE: 20240417
